FAERS Safety Report 5277954-7 (Version None)
Quarter: 2007Q1

REPORT INFORMATION
  Report Type: 
  Country: None (occurrence: None)
  Receive Date: 20070321
  Receipt Date: 20070313
  Transmission Date: 20070707
  Serious: Yes (Death, Other)
  Sender: FDA-Public Use
  Company Number: 163-21880-07030766

PATIENT
  Age: 68 Year
  Sex: Female

DRUGS (11)
  1. REVLIMID [Suspect]
     Indication: MULTIPLE MYELOMA
     Dosage: SEE IMAGE
     Route: 048
     Dates: start: 20020725, end: 20060901
  2. REVLIMID [Suspect]
     Indication: MULTIPLE MYELOMA
     Dosage: SEE IMAGE
     Route: 048
     Dates: start: 20061003, end: 20070130
  3. DECADRON [Suspect]
     Indication: MULTIPLE MYELOMA
     Dosage: 40 MG, DAILY X 4 DAYS
     Dates: start: 20060701
  4. PROCRIT [Concomitant]
  5. DIFLUCAN [Concomitant]
  6. RESTORIL [Concomitant]
  7. ASPIRIN [Concomitant]
  8. CIPRO [Concomitant]
  9. LEVAQUIN [Concomitant]
  10. BENADRYL [Concomitant]
  11. CLARITIN [Concomitant]

REACTIONS (3)
  - PANCYTOPENIA [None]
  - STOMATITIS [None]
  - SUDDEN DEATH [None]
